FAERS Safety Report 8969225 (Version 1)
Quarter: 2012Q4

REPORT INFORMATION
  Report Type: 
  Country: US (occurrence: US)
  Receive Date: 20121218
  Receipt Date: 20121218
  Transmission Date: 20130627
  Serious: Yes (Disabling)
  Sender: FDA-Public Use
  Company Number: US-BRISTOL-MYERS SQUIBB COMPANY-16318073

PATIENT
  Age: 6 None
  Sex: Male

DRUGS (4)
  1. ABILIFY TABS [Suspect]
     Indication: STRESS
     Dosage: 1mg in summer 2011
Last dose:28Oct2011
     Route: 048
     Dates: start: 200808, end: 20111028
  2. ABILIFY TABS [Suspect]
     Indication: DEPRESSION
     Dosage: 1mg in summer 2011
Last dose:28Oct2011
     Route: 048
     Dates: start: 200808, end: 20111028
  3. NORTRIPTYLINE [Concomitant]
  4. LAMICTAL [Concomitant]

REACTIONS (6)
  - Tremor [Unknown]
  - Hyperhidrosis [Unknown]
  - Disturbance in attention [Unknown]
  - Wrong technique in drug usage process [Unknown]
  - Weight decreased [Unknown]
  - Decreased appetite [Unknown]
